FAERS Safety Report 6608399-2 (Version None)
Quarter: 2010Q1

REPORT INFORMATION
  Report Type: 
  Country: None (occurrence: None)
  Receive Date: 20100222
  Receipt Date: 20100208
  Transmission Date: 20100710
  Serious: Yes (Death, Hospitalization)
  Sender: FDA-Public Use
  Company Number: A-NJ2008-20681

PATIENT
  Age: 84 Year
  Sex: Female
  Weight: 48.52 kg

DRUGS (1)
  1. TRACLEER [Suspect]
     Indication: PULMONARY ARTERIAL HYPERTENSION
     Dosage: 125 MG, BID, ORAL
     Route: 048
     Dates: start: 20050601, end: 20091123

REACTIONS (2)
  - CEREBROVASCULAR ACCIDENT [None]
  - HOT FLUSH [None]
